FAERS Safety Report 8495790-5 (Version None)
Quarter: 2012Q3

REPORT INFORMATION
  Report Type: 
  Country: None (occurrence: None)
  Receive Date: 20120709
  Receipt Date: 20120704
  Transmission Date: 20120928
  Serious: Yes (Hospitalization)
  Sender: FDA-Public Use
  Company Number: FR-ROCHE-777146

PATIENT
  Sex: Female

DRUGS (13)
  1. AVASTIN [Suspect]
     Indication: LUNG ADENOCARCINOMA
     Route: 042
  2. AVASTIN [Suspect]
     Route: 042
  3. AVASTIN [Suspect]
     Dosage: 7.5 MG/KG
     Route: 042
  4. AVASTIN [Suspect]
     Dosage: 7.5 MG/KG
     Route: 042
  5. AVASTIN [Suspect]
     Dosage: 7.5 MG/KG
     Route: 042
     Dates: start: 20110405, end: 20110405
  6. NAVELBINE [Concomitant]
  7. AVASTIN [Suspect]
     Route: 042
  8. CARBOPLATIN [Concomitant]
  9. PLATINUM COMPOUND NOS [Concomitant]
  10. CARBOPLATIN [Concomitant]
  11. AVASTIN [Suspect]
     Route: 042
  12. CARBOPLATIN [Concomitant]
  13. CARBOPLATIN [Concomitant]

REACTIONS (1)
  - LUNG ABSCESS [None]
